FAERS Safety Report 22842582 (Version 2)
Quarter: 2023Q4

REPORT INFORMATION
  Report Type: Spontaneous
  Country: JP (occurrence: JP)
  Receive Date: 20230821
  Receipt Date: 20231027
  Transmission Date: 20240109
  Serious: Yes (Hospitalization, Other)
  Sender: FDA-Public Use
  Company Number: JP-AMGEN-JPNSP2023146190

PATIENT
  Age: 58 Year
  Sex: Female

DRUGS (9)
  1. AIMOVIG [Suspect]
     Active Substance: ERENUMAB-AOOE
     Indication: Migraine
     Dosage: 70 MILLIGRAM, Q4WK
     Route: 058
     Dates: start: 20220721, end: 20220916
  2. VALPROIC ACID [Suspect]
     Active Substance: VALPROIC ACID
     Indication: Migraine
     Dosage: UNK
     Route: 065
     Dates: start: 20221031
  3. RIZATRIPTAN [Concomitant]
     Active Substance: RIZATRIPTAN
     Dosage: 10 MILLIGRAM
  4. LOXOPROFEN [Concomitant]
     Active Substance: LOXOPROFEN
     Dosage: 60 MILLIGRAM
  5. DOMPERIDONE [Concomitant]
     Active Substance: DOMPERIDONE
     Dosage: 10 MILLIGRAM
  6. LEVOCETIRIZINE [Concomitant]
     Active Substance: LEVOCETIRIZINE
     Dosage: 10 MILLIGRAM
  7. VIBRAMYCIN [Concomitant]
     Active Substance: DOXYCYCLINE
     Dosage: 200 MILLIGRAM
  8. FREMANEZUMAB [Concomitant]
     Active Substance: FREMANEZUMAB
     Dosage: UNK (AMPLE (A)/4 WEEKS)
  9. SUMATRIPTAN [Concomitant]
     Active Substance: SUMATRIPTAN
     Dosage: 100 MILLIGRAM

REACTIONS (7)
  - Mouth ulceration [Recovered/Resolved]
  - Malaise [Not Recovered/Not Resolved]
  - Drug eruption [Not Recovered/Not Resolved]
  - Feeling hot [Unknown]
  - Coating in mouth [Unknown]
  - Gingival erythema [Unknown]
  - Stomatitis [Unknown]

NARRATIVE: CASE EVENT DATE: 20220901
